FAERS Safety Report 5110893-0 (Version None)
Quarter: 2006Q3

REPORT INFORMATION
  Report Type: 
  Country: None (occurrence: None)
  Receive Date: 20060919
  Receipt Date: 20060908
  Transmission Date: 20061208
  Serious: Yes (Hospitalization, Other)
  Sender: FDA-Public Use
  Company Number: DE-2006-012150

PATIENT
  Age: 59 Year

DRUGS (2)
  1. FLUDARABINE PHOSPHATE [Suspect]
  2. CYCLOPHOSPHAMIDE [Suspect]

REACTIONS (7)
  - CATHETER RELATED INFECTION [None]
  - FALL [None]
  - GRAFT VERSUS HOST DISEASE [None]
  - PROTEUS INFECTION [None]
  - RETROPERITONEAL HAEMATOMA [None]
  - SYNCOPE VASOVAGAL [None]
  - THROMBOSIS [None]
